FAERS Safety Report 8958400 (Version 1)
Quarter: 2012Q4

REPORT INFORMATION
  Report Type: 
  Country: GB (occurrence: GB)
  Receive Date: 20121210
  Receipt Date: 20121210
  Transmission Date: 20130627
  Serious: Yes (Other)
  Sender: FDA-Public Use
  Company Number: GB-GLAXOSMITHKLINE-B0850331A

PATIENT
  Age: 64 Year
  Sex: Female
  Weight: 74.38 kg

DRUGS (3)
  1. FLIXONASE [Suspect]
     Indication: NASAL POLYPS
     Route: 048
     Dates: start: 20120905, end: 20120918
  2. SERETIDE [Concomitant]
  3. CETIRIZINE [Concomitant]

REACTIONS (1)
  - Parosmia [Recovered/Resolved]
